FAERS Safety Report 8030000-4 (Version None)
Quarter: 2012Q1

REPORT INFORMATION
  Report Type: 
  Country: None (occurrence: None)
  Receive Date: 20120109
  Receipt Date: 20120103
  Transmission Date: 20120608
  Serious: Yes (Life-Threatening)
  Sender: FDA-Public Use
  Company Number: 2012SP000030

PATIENT
  Age: 69 Year
  Sex: Male
  Weight: 108 kg

DRUGS (6)
  1. XOPENEX HFA [Suspect]
     Indication: DYSPNOEA
     Route: 055
  2. XOPENEX HFA [Suspect]
     Indication: OXYGEN SATURATION DECREASED
     Route: 055
  3. ATROPINE [Suspect]
     Indication: DYSPNOEA
     Route: 055
  4. ALBUTEROL [Suspect]
     Indication: DYSPNOEA
     Route: 055
  5. ALBUTEROL [Suspect]
     Indication: OXYGEN SATURATION DECREASED
     Route: 055
  6. ATROPINE [Suspect]
     Indication: OXYGEN SATURATION DECREASED
     Route: 055

REACTIONS (6)
  - BLOOD POTASSIUM INCREASED [None]
  - HAEMOGLOBIN DECREASED [None]
  - VENTRICULAR ARRHYTHMIA [None]
  - HAEMATOCRIT DECREASED [None]
  - ROAD TRAFFIC ACCIDENT [None]
  - LABORATORY TEST ABNORMAL [None]
